FAERS Safety Report 25098915 (Version 1)
Quarter: 2025Q1

REPORT INFORMATION
  Report Type: Spontaneous
  Country: US (occurrence: US)
  Receive Date: 20250320
  Receipt Date: 20250320
  Transmission Date: 20250409
  Serious: Yes (Hospitalization)
  Sender: RIGEL PHARMACEUTICALS
  Company Number: US-RIGEL PHARMACEUTICALS, INC.-20250300104

PATIENT
  Sex: Female

DRUGS (1)
  1. TAVALISSE [Suspect]
     Active Substance: FOSTAMATINIB
     Indication: Immune thrombocytopenia
     Dosage: 100 MG,BID
     Route: 065
     Dates: start: 20250115, end: 2025

REACTIONS (3)
  - Hospitalisation [Unknown]
  - Platelet count decreased [Unknown]
  - Transplant [Unknown]

NARRATIVE: CASE EVENT DATE: 20250101
